FAERS Safety Report 4780067-1 (Version None)
Quarter: 2005Q3

REPORT INFORMATION
  Report Type: 
  Country: None (occurrence: None)
  Receive Date: 20050914
  Receipt Date: 20050429
  Transmission Date: 20060218
  Serious: Yes (Disabling)
  Sender: FDA-Public Use
  Company Number: 163-20785-05050007

PATIENT
  Age: 66 Year
  Sex: Female

DRUGS (1)
  1. THALOMID [Suspect]
     Indication: PANNICULITIS
     Dosage: 100 MG, DAILY, ORAL
     Route: 048
     Dates: start: 20041119, end: 20050101

REACTIONS (4)
  - BACK PAIN [None]
  - CHILLS [None]
  - NERVE INJURY [None]
  - PALLOR [None]
